FAERS Safety Report 20145468 (Version 1)
Quarter: 2021Q4

REPORT INFORMATION
  Report Type: Spontaneous
  Country: CN (occurrence: CN)
  Receive Date: 20211203
  Receipt Date: 20211203
  Transmission Date: 20220303
  Serious: Yes (Other)
  Sender: FDA-Public Use
  Company Number: CN-PFIZER INC-202101630465

PATIENT
  Age: 98 Year
  Sex: Male

DRUGS (2)
  1. ZYVOX [Suspect]
     Active Substance: LINEZOLID
     Indication: Urinary tract infection
     Dosage: 0.6 G, 2X/DAY
     Route: 048
     Dates: start: 20211015, end: 20211022
  2. ZYVOX [Suspect]
     Active Substance: LINEZOLID
     Indication: Symptomatic treatment

REACTIONS (3)
  - Renal impairment [Recovering/Resolving]
  - Chronic kidney disease [Recovering/Resolving]
  - Acute kidney injury [Recovering/Resolving]

NARRATIVE: CASE EVENT DATE: 20211018
